FAERS Safety Report 11805915 (Version 1)
Quarter: 2015Q4

REPORT INFORMATION
  Report Type: Spontaneous
  Country: US (occurrence: None)
  Receive Date: 20151204
  Receipt Date: 20151204
  Transmission Date: 20160305
  Serious: Yes (Hospitalization)
  Sender: FDA-Public Use
  Company Number: None

PATIENT
  Age: 69 Year
  Sex: Male

DRUGS (1)
  1. ACTHAR [Suspect]
     Active Substance: CORTICOTROPIN
     Indication: GLOMERULONEPHRITIS CHRONIC
     Dosage: 80 U
     Route: 058
     Dates: start: 20150904, end: 20150922

REACTIONS (3)
  - Lung infection [None]
  - Brain abscess [None]
  - Cerebrovascular accident [None]

NARRATIVE: CASE EVENT DATE: 20150922
